FAERS Safety Report 6511605-6 (Version None)
Quarter: 2009Q4

REPORT INFORMATION
  Report Type: 
  Country: None (occurrence: None)
  Receive Date: 20091222
  Receipt Date: 20090428
  Transmission Date: 20100525
  Serious: No
  Sender: FDA-Public Use
  Company Number: US-ASTRAZENECA-2009UW10561

PATIENT
  Age: 55 Year
  Sex: Female
  Weight: 84.8 kg

DRUGS (3)
  1. CRESTOR [Suspect]
     Indication: BLOOD CHOLESTEROL INCREASED
     Route: 048
     Dates: start: 20090409, end: 20090420
  2. LISINOPRIL [Concomitant]
  3. METOPROLOL XR [Concomitant]

REACTIONS (2)
  - NAUSEA [None]
  - VOMITING IN PREGNANCY [None]
